FAERS Safety Report 7214963-2 (Version None)
Quarter: 2011Q1

REPORT INFORMATION
  Report Type: 
  Country: None (occurrence: None)
  Receive Date: 20110107
  Receipt Date: 20100610
  Transmission Date: 20110831
  Serious: No
  Sender: FDA-Public Use
  Company Number: A0864313A

PATIENT
  Age: 68 Year
  Sex: Female

DRUGS (2)
  1. LOVAZA [Suspect]
     Indication: PROPHYLAXIS
     Dosage: 2CAP PER DAY
     Route: 048
     Dates: start: 20100101, end: 20100101
  2. NO CONCURRENT MEDICATION [Concomitant]

REACTIONS (3)
  - LOW DENSITY LIPOPROTEIN INCREASED [None]
  - MALAISE [None]
  - HEADACHE [None]
